FAERS Safety Report 9819048 (Version 2)
Quarter: 2014Q1

REPORT INFORMATION
  Report Type: Spontaneous
  Country: US (occurrence: US)
  Receive Date: 20140115
  Receipt Date: 20140210
  Transmission Date: 20141002
  Serious: Yes (Other)
  Sender: FDA-Public Use
  Company Number: US-PFIZER INC-2014009647

PATIENT
  Age: 40 Year
  Sex: Male
  Weight: 96.15 kg

DRUGS (3)
  1. LYRICA [Suspect]
     Indication: NERVOUS SYSTEM DISORDER
     Dosage: UNK (900 MG IN A DAY)
  2. LYRICA [Suspect]
     Indication: CRANIOCEREBRAL INJURY
     Dosage: UNK (275 MG IN A DAY)
  3. LAMICTAL [Concomitant]
     Indication: NERVOUS SYSTEM DISORDER
     Dosage: UNK (100 MG IN MORNING AND 200 MG AT NIGHT), 2X/DAY
     Dates: start: 2013

REACTIONS (13)
  - Loss of consciousness [Recovered/Resolved]
  - Oxygen saturation decreased [Unknown]
  - Depression [Recovering/Resolving]
  - Mood altered [Recovering/Resolving]
  - Eye swelling [Unknown]
  - Ocular hyperaemia [Unknown]
  - Feeling abnormal [Unknown]
  - Weight increased [Unknown]
  - Fatigue [Unknown]
  - Sleep disorder [Unknown]
  - Asthenia [Unknown]
  - Poor quality sleep [Unknown]
  - Malaise [Recovered/Resolved]
